FAERS Safety Report 6160582-9 (Version None)
Quarter: 2009Q2

REPORT INFORMATION
  Report Type: 
  Country: None (occurrence: None)
  Receive Date: 20090416
  Receipt Date: 20090402
  Transmission Date: 20091009
  Serious: Yes (Other)
  Sender: FDA-Public Use
  Company Number: 2009EU000497

PATIENT
  Sex: Female

DRUGS (2)
  1. PROTOPIC [Suspect]
     Indication: DERMATITIS ATOPIC
     Dosage: 0.1% D,TOPICAL
     Route: 061
     Dates: start: 20030601
  2. DESLORATADINE [Concomitant]

REACTIONS (1)
  - BASAL CELL CARCINOMA [None]
